FAERS Safety Report 15619637 (Version 1)
Quarter: 2018Q4

REPORT INFORMATION
  Report Type: Spontaneous
  Country: US (occurrence: US)
  Receive Date: 20181115
  Receipt Date: 20181115
  Transmission Date: 20190205
  Serious: No
  Sender: FDA-Public Use
  Company Number: US-JNJFOC-20181042360

PATIENT

DRUGS (1)
  1. INVEGA SUSTENNA [Suspect]
     Active Substance: PALIPERIDONE PALMITATE
     Indication: SCHIZOPHRENIA
     Route: 030

REACTIONS (6)
  - Apathy [Unknown]
  - Blood prolactin increased [Unknown]
  - Tardive dyskinesia [Unknown]
  - Ataxia [Unknown]
  - Anhedonia [Unknown]
  - Sexual dysfunction [Unknown]
